FAERS Safety Report 8820917 (Version 1)
Quarter: 2012Q4

REPORT INFORMATION
  Report Type: Report from Study
  Country: HU (occurrence: HU)
  Receive Date: 20121002
  Receipt Date: 20121002
  Transmission Date: 20130627
  Serious: Yes (Hospitalization)
  Sender: FDA-Public Use
  Company Number: HU-ROCHE-CID000000002166555

PATIENT
  Age: 44 Year
  Sex: Female
  Weight: 78.5 kg

DRUGS (5)
  1. COPEGUS [Suspect]
     Indication: HEPATITIS C
     Route: 065
     Dates: end: 20120404
  2. PEGASYS [Suspect]
     Indication: HEPATITIS C
     Dosage: Last dose 28 Mar 2012
     Route: 065
     Dates: start: 20110504, end: 20120404
  3. METOPROLOL [Concomitant]
     Route: 065
     Dates: start: 1993
  4. PERINDOPRIL [Concomitant]
     Route: 065
     Dates: start: 20110304
  5. CLONAZEPAM [Concomitant]
     Route: 065
     Dates: start: 200703

REACTIONS (1)
  - Thrombophlebitis [Recovering/Resolving]
